FAERS Safety Report 13352826 (Version 2)
Quarter: 2017Q2

REPORT INFORMATION
  Report Type: Report from Study
  Country: US (occurrence: US)
  Receive Date: 20170320
  Receipt Date: 20170406
  Transmission Date: 20170830
  Serious: Yes (Hospitalization, Other)
  Sender: FDA-Public Use
  Company Number: US-AMGEN-USASL2017039194

PATIENT
  Age: 81 Year
  Sex: Male

DRUGS (2)
  1. ENBREL [Suspect]
     Active Substance: ETANERCEPT
     Dosage: UNK
     Route: 065
  2. ENBREL [Suspect]
     Active Substance: ETANERCEPT
     Indication: RHEUMATOID ARTHRITIS
     Dosage: UNK
     Route: 065

REACTIONS (10)
  - Impaired healing [Not Recovered/Not Resolved]
  - Suture related complication [Unknown]
  - Incision site erythema [Unknown]
  - Squamous cell carcinoma [Unknown]
  - Amnesia [Unknown]
  - Basal cell carcinoma [Unknown]
  - Sepsis [Unknown]
  - Induration [Unknown]
  - Off label use [Unknown]
  - Staphylococcal sepsis [Unknown]

NARRATIVE: CASE EVENT DATE: 2015
